FAERS Safety Report 8833228 (Version 1)
Quarter: 2012Q4

REPORT INFORMATION
  Report Type: 
  Country: AR (occurrence: AR)
  Receive Date: 20121010
  Receipt Date: 20121010
  Transmission Date: 20130627
  Serious: Yes (Other)
  Sender: FDA-Public Use
  Company Number: PHHY2012AR088385

PATIENT
  Age: 64 None
  Sex: Female

DRUGS (1)
  1. DIOVAN [Suspect]
     Indication: HYPERTENSION
     Dosage: 2 DF daily (320 mg, two tablet daily)
     Dates: start: 201205

REACTIONS (2)
  - Cyst [Not Recovered/Not Resolved]
  - Vision blurred [Unknown]
